FAERS Safety Report 5194535-4 (Version None)
Quarter: 2006Q4

REPORT INFORMATION
  Report Type: 
  Country: None (occurrence: None)
  Receive Date: 20061222
  Receipt Date: 20060925
  Transmission Date: 20070319
  Serious: Yes (Hospitalization)
  Sender: FDA-Public Use
  Company Number: ENTC2006-0291

PATIENT
  Age: 64 Year
  Sex: Female

DRUGS (2)
  1. STALEVO 100 [Suspect]
     Indication: PARKINSON'S DISEASE
     Dosage: 100/25/200MG X 5 ORAL
     Route: 048
     Dates: start: 20060223
  2. MIRAPEXIN [Concomitant]

REACTIONS (7)
  - ANGINA PECTORIS [None]
  - CHOLECYSTITIS [None]
  - CORONARY ARTERY DISEASE [None]
  - FLATULENCE [None]
  - HEPATIC STEATOSIS [None]
  - HYDRONEPHROSIS [None]
  - NEPHROLITHIASIS [None]
